FAERS Safety Report 23911210 (Version 4)
Quarter: 2024Q4

REPORT INFORMATION
  Report Type: Report from Study
  Country: DE (occurrence: DE)
  Receive Date: 20240528
  Receipt Date: 20241120
  Transmission Date: 20250115
  Serious: Yes (Hospitalization)
  Sender: TAKEDA
  Company Number: DE-TAKEDA-2024TUS052334

PATIENT
  Age: 57 Year
  Sex: Male
  Weight: 78 kg

DRUGS (9)
  1. TEDUGLUTIDE [Suspect]
     Active Substance: TEDUGLUTIDE
     Indication: Short-bowel syndrome
     Dosage: 3.8 MILLIGRAM, QD
     Dates: start: 20220705, end: 20230816
  2. TEDUGLUTIDE [Suspect]
     Active Substance: TEDUGLUTIDE
     Dosage: 3.8 MILLIGRAM, 3/WEEK
     Dates: start: 20230817
  3. TEDUGLUTIDE [Suspect]
     Active Substance: TEDUGLUTIDE
  4. TEDUGLUTIDE [Suspect]
     Active Substance: TEDUGLUTIDE
  5. XIFAXAN [Concomitant]
     Active Substance: RIFAXIMIN
     Indication: Neurological symptom
     Dosage: 550 MILLIGRAM, BID
     Dates: start: 20230222, end: 20230405
  6. XIFAXAN [Concomitant]
     Active Substance: RIFAXIMIN
     Dosage: 550 MILLIGRAM, QD
     Dates: start: 20230406
  7. METOPROLOL [Concomitant]
     Active Substance: METOPROLOL
     Indication: Hypertension
     Dosage: 100 MILLIGRAM, BID
     Dates: start: 20240126
  8. METOPROLOL [Concomitant]
     Active Substance: METOPROLOL
     Dosage: 50 MILLIGRAM, BID
     Dates: start: 20230816
  9. FENOFIBRATE [Concomitant]
     Active Substance: FENOFIBRATE
     Dosage: 145 MILLIGRAM, QD
     Dates: start: 202307

REACTIONS (4)
  - Device related infection [Recovered/Resolved]
  - Mucosal hypertrophy [Not Recovered/Not Resolved]
  - Fatigue [Not Recovered/Not Resolved]
  - Stoma site inflammation [Recovered/Resolved]

NARRATIVE: CASE EVENT DATE: 20231223
